FAERS Safety Report 13466468 (Version 1)
Quarter: 2017Q2

REPORT INFORMATION
  Report Type: Spontaneous
  Country: US (occurrence: US)
  Receive Date: 20170420
  Receipt Date: 20170420
  Transmission Date: 20170830
  Serious: No
  Sender: FDA-Public Use
  Company Number: None

PATIENT
  Sex: Female

DRUGS (1)
  1. FORTEO [Suspect]
     Active Substance: TERIPARATIDE
     Route: 058
     Dates: start: 20170120

REACTIONS (6)
  - Injection site rash [None]
  - Pain in jaw [None]
  - Viral upper respiratory tract infection [None]
  - Influenza [None]
  - Dry skin [None]
  - Palpitations [None]
